FAERS Safety Report 7594714-2 (Version None)
Quarter: 2011Q3

REPORT INFORMATION
  Report Type: 
  Country: None (occurrence: None)
  Receive Date: 20110707
  Receipt Date: 20110705
  Transmission Date: 20111222
  Serious: Yes (Hospitalization, Other)
  Sender: FDA-Public Use
  Company Number: US-JNJFOC-20100804625

PATIENT
  Sex: Female

DRUGS (3)
  1. LEVAQUIN [Suspect]
     Indication: EAR INFECTION
     Route: 048
     Dates: start: 20061022, end: 20061105
  2. LEVAQUIN [Suspect]
     Indication: SINUSITIS
     Route: 048
     Dates: start: 20061022, end: 20061105
  3. LEVAQUIN [Suspect]
     Indication: BRONCHITIS
     Route: 048
     Dates: start: 20061022, end: 20061105

REACTIONS (3)
  - TENDON RUPTURE [None]
  - JOINT INJURY [None]
  - ROTATOR CUFF SYNDROME [None]
